FAERS Safety Report 12946235 (Version 3)
Quarter: 2018Q3

REPORT INFORMATION
  Report Type: Spontaneous
  Country: GB (occurrence: GB)
  Receive Date: 20161115
  Receipt Date: 20180711
  Transmission Date: 20181010
  Serious: Yes (Death, Life-Threatening, Hospitalization, Other)
  Sender: FDA-Public Use
  Company Number: GB-MYLANLABS-2016M1042893

PATIENT
  Age: 57 Year
  Sex: Female

DRUGS (3)
  1. MIRTAZAPINE. [Concomitant]
     Active Substance: MIRTAZAPINE
     Indication: DEPRESSION
     Dosage: 30 MG, QD
     Route: 048
     Dates: start: 201604
  2. CLOZARIL [Suspect]
     Active Substance: CLOZAPINE
     Indication: SCHIZOPHRENIA
     Dosage: 350 MG, QD
     Route: 048
     Dates: start: 20061017
  3. AMISULPRIDE [Concomitant]
     Active Substance: AMISULPRIDE
     Indication: SCHIZOPHRENIA
     Dosage: 400 MG, QD
     Route: 048

REACTIONS (7)
  - Cervix carcinoma [Not Recovered/Not Resolved]
  - White blood cell count increased [Recovering/Resolving]
  - Obstructive nephropathy [Not Recovered/Not Resolved]
  - Death [Fatal]
  - General physical condition abnormal [Unknown]
  - Neutrophil count increased [Not Recovered/Not Resolved]
  - Platelet count increased [Recovering/Resolving]

NARRATIVE: CASE EVENT DATE: 20160315
